FAERS Safety Report 23059168 (Version 1)
Quarter: 2023Q4

REPORT INFORMATION
  Report Type: Spontaneous
  Country: US (occurrence: US)
  Receive Date: 20231012
  Receipt Date: 20231012
  Transmission Date: 20240109
  Serious: Yes (Hospitalization, Other)
  Sender: FDA-Public Use
  Company Number: US-MYLANLABS-2023M1107504

PATIENT
  Age: 65 Year
  Sex: Male

DRUGS (1)
  1. CLOZAPINE [Suspect]
     Active Substance: CLOZAPINE
     Indication: Schizophrenia
     Dosage: UNK, THE PATIENT HAD BEEN RECEIVING TREATMENT WITH CLOZAPINE FOR OVER 10 YEARS.
     Route: 065

REACTIONS (2)
  - Herpes zoster disseminated [Recovered/Resolved with Sequelae]
  - Post herpetic neuralgia [Unknown]
